FAERS Safety Report 6333189-8 (Version None)
Quarter: 2009Q3

REPORT INFORMATION
  Report Type: 
  Country: None (occurrence: None)
  Receive Date: 20090828
  Receipt Date: 20090819
  Transmission Date: 20100115
  Serious: Yes (Disabling)
  Sender: FDA-Public Use
  Company Number: FR-CELGENEUS-056-50794-09060965

PATIENT
  Age: 72 Year
  Sex: Male
  Weight: 70 kg

DRUGS (6)
  1. VIDAZA [Suspect]
     Route: 058
     Dates: start: 20090330, end: 20090403
  2. PREDNISONE TAB [Concomitant]
     Route: 065
  3. FLUINDIONE [Concomitant]
     Dosage: 1/4, 1/4, 1/2
     Route: 065
  4. AMIODARONE [Concomitant]
     Route: 065
  5. FENTANYL [Concomitant]
     Indication: PAIN
     Route: 062
  6. SULFATE OF MORPHINE [Concomitant]
     Indication: PAIN
     Route: 065

REACTIONS (1)
  - OPTIC NEUROPATHY [None]
